FAERS Safety Report 6288816-0 (Version None)
Quarter: 2009Q3

REPORT INFORMATION
  Report Type: 
  Country: None (occurrence: None)
  Receive Date: 20090729
  Receipt Date: 20090720
  Transmission Date: 20100115
  Serious: Yes (Other)
  Sender: FDA-Public Use
  Company Number: US-JNJFOC-20090706677

PATIENT
  Sex: Male

DRUGS (8)
  1. REMICADE [Suspect]
     Indication: CROHN'S DISEASE
     Dosage: 1 INFUSION
     Route: 042
  2. LASIX [Concomitant]
  3. TYLENOL W/ CODEINE NO. 3 [Concomitant]
  4. IMODIUM [Concomitant]
  5. ASACOL [Concomitant]
     Indication: CROHN'S DISEASE
  6. IMURAN [Concomitant]
     Indication: CROHN'S DISEASE
  7. PREDNISONE [Concomitant]
     Indication: CROHN'S DISEASE
  8. ZOLOFT [Concomitant]
     Route: 048

REACTIONS (1)
  - HERPES ZOSTER [None]
